FAERS Safety Report 25725299 (Version 1)
Quarter: 2025Q3

REPORT INFORMATION
  Report Type: Spontaneous
  Country: EU (occurrence: EU)
  Receive Date: 20250826
  Receipt Date: 20250826
  Transmission Date: 20251020
  Serious: Yes (Other)
  Sender: ENDO
  Company Number: EU-ENDO USA, INC.-2025-001788

PATIENT
  Sex: Male

DRUGS (1)
  1. AVEED [Suspect]
     Active Substance: TESTOSTERONE UNDECANOATE
     Indication: Product used for unknown indication
     Route: 065

REACTIONS (6)
  - Hyperthyroidism [Unknown]
  - Prostatomegaly [Unknown]
  - Prostatic pain [Unknown]
  - Swelling [Unknown]
  - Heart rate increased [Unknown]
  - Suspected product quality issue [Unknown]
